FAERS Safety Report 8428969 (Version 2)
Quarter: 2013Q3

REPORT INFORMATION
  Report Type: Spontaneous
  Country: FR (occurrence: FR)
  Receive Date: 20120227
  Receipt Date: 20130705
  Transmission Date: 20140515
  Serious: Yes (Hospitalization, Other)
  Sender: FDA-Public Use
  Company Number: PHHY2012FR014342

PATIENT
  Sex: Female

DRUGS (2)
  1. TASIGNA [Suspect]
     Dosage: 800 MG, UNK
     Route: 048
     Dates: start: 200810
  2. TASIGNA [Suspect]
     Dosage: 400 MG, UNK
     Route: 048
     Dates: end: 201205

REACTIONS (5)
  - Cerebrovascular accident [Unknown]
  - Peripheral ischaemia [Unknown]
  - Peripheral arterial occlusive disease [Unknown]
  - Arterial disorder [Unknown]
  - Anxiety [Unknown]
